FAERS Safety Report 4653208-4 (Version None)
Quarter: 2005Q2

REPORT INFORMATION
  Report Type: 
  Country: None (occurrence: None)
  Receive Date: 20050503
  Receipt Date: 20050419
  Transmission Date: 20051028
  Serious: Yes (Hospitalization)
  Sender: FDA-Public Use
  Company Number: 200511640BCC

PATIENT
  Age: 76 Year
  Sex: Male
  Weight: 102.0593 kg

DRUGS (4)
  1. ALEVE COLD AND SINUS [Suspect]
     Indication: NASOPHARYNGITIS
     Dosage: 220/120 MG, IRR, ORAL
     Route: 048
     Dates: start: 20050403, end: 20050410
  2. COUMADIN [Concomitant]
  3. CALCIUM GLUCONATE [Concomitant]
  4. LOPID [Concomitant]

REACTIONS (1)
  - DYSPNOEA [None]
